FAERS Safety Report 4807269-X (Version None)
Quarter: 2005Q4

REPORT INFORMATION
  Report Type: 
  Country: None (occurrence: None)
  Receive Date: 20051020
  Receipt Date: 20051012
  Transmission Date: 20060501
  Serious: Yes (Other)
  Sender: FDA-Public Use
  Company Number: L05-JPN-03636-02

PATIENT
  Age: 7 Year
  Sex: Female

DRUGS (9)
  1. CARBAMAZEPINE [Suspect]
     Indication: ATYPICAL BENIGN PARTIAL EPILEPSY
     Dosage: UNK
  2. CARBAMAZEPINE [Suspect]
     Indication: ATYPICAL BENIGN PARTIAL EPILEPSY
     Dosage: 200 MG QD
  3. CARBAMAZEPINE [Suspect]
     Indication: ATYPICAL BENIGN PARTIAL EPILEPSY
     Dosage: 300 MG QD
  4. CLONAZEPAM [Concomitant]
  5. ETHOSUXIMIDE [Concomitant]
  6. TRIMETHADIONE [Concomitant]
  7. PHENYTOIN [Concomitant]
  8. ANTIEPILEPTICS [Concomitant]
  9. VALPROIC ACID [Concomitant]

REACTIONS (3)
  - CONDITION AGGRAVATED [None]
  - CONVULSION [None]
  - THERAPY NON-RESPONDER [None]
